FAERS Safety Report 5869557-8 (Version None)
Quarter: 2008Q3

REPORT INFORMATION
  Report Type: 
  Country: None (occurrence: None)
  Receive Date: 20080902
  Receipt Date: 20080818
  Transmission Date: 20090109
  Serious: Yes (Other)
  Sender: FDA-Public Use
  Company Number: 2008-03044

PATIENT
  Age: 53 Year
  Sex: Male
  Weight: 57 kg

DRUGS (1)
  1. VELCADE [Suspect]
     Indication: MULTIPLE MYELOMA

REACTIONS (1)
  - FACIAL PALSY [None]
